FAERS Safety Report 23217606 (Version 2)
Quarter: 2023Q4

REPORT INFORMATION
  Report Type: Spontaneous
  Country: US (occurrence: US)
  Receive Date: 20231122
  Receipt Date: 20231129
  Transmission Date: 20240110
  Serious: Yes (Life-Threatening, Hospitalization, Other)
  Sender: FDA-Public Use
  Company Number: US-MLMSERVICE-20231110-4645972-1

PATIENT
  Age: 12 Year
  Sex: Male

DRUGS (9)
  1. CLINDAMYCIN HYDROCHLORIDE [Suspect]
     Active Substance: CLINDAMYCIN HYDROCHLORIDE
     Indication: Septic arthritis staphylococcal
     Dosage: UNK (DAYS 4 TO 0)
     Route: 048
  2. CLINDAMYCIN HYDROCHLORIDE [Suspect]
     Active Substance: CLINDAMYCIN HYDROCHLORIDE
     Indication: Staphylococcal bacteraemia
  3. CLINDAMYCIN HYDROCHLORIDE [Suspect]
     Active Substance: CLINDAMYCIN HYDROCHLORIDE
     Indication: Osteomyelitis
  4. CLINDAMYCIN PHOSPHATE [Suspect]
     Active Substance: CLINDAMYCIN PHOSPHATE
     Indication: Septic arthritis staphylococcal
     Dosage: IV (DAYS 23 TO 15)
     Route: 042
  5. CLINDAMYCIN PHOSPHATE [Suspect]
     Active Substance: CLINDAMYCIN PHOSPHATE
     Indication: Staphylococcal bacteraemia
  6. CLINDAMYCIN PHOSPHATE [Suspect]
     Active Substance: CLINDAMYCIN PHOSPHATE
     Indication: Osteomyelitis
  7. VANCOMYCIN HYDROCHLORIDE [Suspect]
     Active Substance: VANCOMYCIN HYDROCHLORIDE
     Indication: Septic arthritis staphylococcal
     Dosage: UNK (DAYS 23 TO 4)
     Route: 042
  8. VANCOMYCIN HYDROCHLORIDE [Suspect]
     Active Substance: VANCOMYCIN HYDROCHLORIDE
     Indication: Osteomyelitis
  9. VANCOMYCIN HYDROCHLORIDE [Suspect]
     Active Substance: VANCOMYCIN HYDROCHLORIDE
     Indication: Staphylococcal bacteraemia

REACTIONS (11)
  - Cardiac murmur [Recovered/Resolved]
  - Colitis [Recovered/Resolved]
  - Drug reaction with eosinophilia and systemic symptoms [Recovering/Resolving]
  - Tachycardia [Recovered/Resolved]
  - Pleural effusion [Recovering/Resolving]
  - Proteinuria [Recovered/Resolved]
  - Pyuria [Recovered/Resolved]
  - Hepatitis [Recovered/Resolved]
  - Lymphadenopathy [Recovered/Resolved]
  - Hyponatraemia [Recovering/Resolving]
  - Anaemia [Recovered/Resolved]
